FAERS Safety Report 11040238 (Version 2)
Quarter: 2015Q2

REPORT INFORMATION
  Report Type: Spontaneous
  Country: US (occurrence: US)
  Receive Date: 20150416
  Receipt Date: 20150525
  Transmission Date: 20150821
  Serious: Yes (Other)
  Sender: FDA-Public Use
  Company Number: US-JNJFOC-20130212670

PATIENT
  Age: 60 Year
  Sex: Male
  Weight: 86.18 kg

DRUGS (5)
  1. MULTIVITAMINS [Concomitant]
     Active Substance: VITAMINS
     Indication: VITAMIN SUPPLEMENTATION
     Route: 065
  2. HAWTHORN [Concomitant]
     Indication: PHYTOTHERAPY
     Route: 065
  3. GRAPE SEED [Concomitant]
     Indication: PHYTOTHERAPY
     Route: 065
  4. XARELTO [Suspect]
     Active Substance: RIVAROXABAN
     Indication: THROMBOSIS
     Route: 048
     Dates: start: 20130219
  5. MILK THISTLE [Concomitant]
     Active Substance: MILK THISTLE
     Indication: PHYTOTHERAPY
     Route: 065

REACTIONS (1)
  - Blood urine present [Unknown]

NARRATIVE: CASE EVENT DATE: 20130220
